FAERS Safety Report 8273652-6 (Version None)
Quarter: 2012Q2

REPORT INFORMATION
  Report Type: 
  Country: None (occurrence: None)
  Receive Date: 20120411
  Receipt Date: 20120221
  Transmission Date: 20120825
  Serious: No
  Sender: FDA-Public Use
  Company Number: US-TEVA-323545USA

PATIENT
  Sex: Female
  Weight: 136.2 kg

DRUGS (1)
  1. NUVIGIL [Suspect]
     Indication: MULTIPLE SCLEROSIS
     Dosage: QD
     Route: 048
     Dates: start: 20120207, end: 20120219

REACTIONS (7)
  - OFF LABEL USE [None]
  - CHEST PAIN [None]
  - PRURITUS [None]
  - TENSION [None]
  - HEADACHE [None]
  - DRUG INEFFECTIVE [None]
  - ANGER [None]
